FAERS Safety Report 5639068-3 (Version None)
Quarter: 2008Q1

REPORT INFORMATION
  Report Type: 
  Country: None (occurrence: None)
  Receive Date: 20080226
  Receipt Date: 20080130
  Transmission Date: 20080703
  Serious: No
  Sender: FDA-Public Use
  Company Number: US-BAUSCH-2008BL000391

PATIENT
  Age: 83 Year
  Sex: Male

DRUGS (1)
  1. FLUNISOLIDE NASAL SOLUTION USP 0.025% [Suspect]
     Indication: SINUSITIS
     Route: 045
     Dates: start: 20080126

REACTIONS (2)
  - EPISTAXIS [None]
  - FACE INJURY [None]
